FAERS Safety Report 23139461 (Version 1)
Quarter: 2023Q4

REPORT INFORMATION
  Report Type: Spontaneous
  Country: FR (occurrence: FR)
  Receive Date: 20231102
  Receipt Date: 20231102
  Transmission Date: 20240110
  Serious: No
  Sender: FDA-Public Use
  Company Number: FR-AFSSAPS-TS2023000898

PATIENT
  Age: 76 Year
  Sex: Male
  Weight: 63 kg

DRUGS (1)
  1. BOSENTAN [Suspect]
     Active Substance: BOSENTAN
     Indication: Pulmonary arterial hypertension
     Dosage: 62.5 MILLIGRAM, BID
     Route: 048
     Dates: start: 20230514, end: 20230614

REACTIONS (2)
  - Hepatic enzyme increased [Recovered/Resolved]
  - Abdominal pain [Recovered/Resolved]

NARRATIVE: CASE EVENT DATE: 20230601
